FAERS Safety Report 22186022 (Version 1)
Quarter: 2023Q2

REPORT INFORMATION
  Report Type: Spontaneous
  Country: GB (occurrence: GB)
  Receive Date: 20230407
  Receipt Date: 20230407
  Transmission Date: 20230722
  Serious: Yes (Other)
  Sender: FDA-Public Use
  Company Number: None

PATIENT
  Age: 98 Year
  Sex: Female
  Weight: 38 kg

DRUGS (12)
  1. DOXYCYCLINE [Suspect]
     Active Substance: DOXYCYCLINE
     Indication: Lower respiratory tract infection
     Dosage: 100 MILLIGRAM (2 NOW THEN ONE DAILY)
     Route: 048
     Dates: start: 20220419, end: 20220424
  2. AMOXICILLIN [Concomitant]
     Active Substance: AMOXICILLIN
     Dosage: 10 MILLILITER, TID
     Route: 065
     Dates: start: 20220421, end: 20220426
  3. ASPIRIN [Concomitant]
     Active Substance: ASPIRIN
     Dosage: 1 DOSAGE FORM, QD
     Route: 065
     Dates: start: 20210921
  4. CEPHALEXIN [Concomitant]
     Active Substance: CEPHALEXIN
     Dosage: 10 MILLILITER, TID
     Route: 065
     Dates: start: 20220217, end: 20220218
  5. ENOXAPARIN SODIUM [Concomitant]
     Active Substance: ENOXAPARIN SODIUM
     Dosage: 1 DOSAGE FORM, QD
     Route: 065
     Dates: start: 20211103, end: 20220215
  6. Conotrane [Concomitant]
     Dosage: UNK (AS NECESSARY)
     Route: 065
     Dates: start: 20210701
  7. IBUPROFEN [Concomitant]
     Active Substance: IBUPROFEN
     Dosage: UNK(APPLY 3 TIMES PER DAY TO SHOULDERS)
     Route: 065
     Dates: start: 20210701
  8. POLYETHYLENE GLYCOL 3350\POTASSIUM CHLORIDE\SODIUM BICARBONATE\SODIUM [Concomitant]
     Active Substance: POLYETHYLENE GLYCOL 3350\POTASSIUM CHLORIDE\SODIUM BICARBONATE\SODIUM CHLORIDE
     Indication: Constipation
     Dosage: UNK (1 TO 3 PER DAY)
     Route: 065
     Dates: start: 20210701
  9. OMEPRAZOLE [Concomitant]
     Active Substance: OMEPRAZOLE
     Dosage: 1 DOSAGE FORM, QD
     Route: 065
     Dates: start: 20210924
  10. RIVAROXABAN [Concomitant]
     Active Substance: RIVAROXABAN
     Dosage: 1 DOSAGE FORM, QD
     Route: 065
     Dates: start: 20220215
  11. SODIUM CHLORIDE [Concomitant]
     Active Substance: SODIUM CHLORIDE
     Dosage: 1 DOSAGE FORM
     Route: 065
     Dates: start: 20210701
  12. TRIMETHOPRIM [Concomitant]
     Active Substance: TRIMETHOPRIM
     Indication: Infection
     Dosage: 20 MILLILITER, BID
     Route: 065
     Dates: start: 20220209, end: 20220212

REACTIONS (2)
  - Confusional state [Recovered/Resolved]
  - Hypotension [Unknown]
